FAERS Safety Report 8859394 (Version 2)
Quarter: 2013Q3

REPORT INFORMATION
  Report Type: Spontaneous
  Country: US (occurrence: US)
  Receive Date: 20121024
  Receipt Date: 20130917
  Transmission Date: 20140515
  Serious: Yes (Hospitalization, Disabling, Other)
  Sender: FDA-Public Use
  Company Number: US-009507513-1210USA006974

PATIENT
  Sex: Female

DRUGS (6)
  1. FOSAMAX [Suspect]
     Indication: OSTEOPOROSIS
     Dosage: 70 MG, UNK
     Route: 048
     Dates: end: 2010
  2. ALENDRONATE SODIUM [Suspect]
     Indication: OSTEOPOROSIS
     Dosage: 70 MG, UNK
     Route: 048
     Dates: end: 2010
  3. EVISTA [Concomitant]
     Dosage: 1 DF, QD
     Dates: start: 1992
  4. CITRACAL [Concomitant]
     Dosage: 2 DF, QD
     Dates: start: 1992
  5. CENTRUM SILVER [Concomitant]
     Dosage: 1 DF, QD
     Dates: start: 1992
  6. CHOLECALCIFEROL [Concomitant]
     Dosage: 2 DF, QD
     Dates: start: 1992

REACTIONS (7)
  - Femur fracture [Unknown]
  - Surgery [Unknown]
  - Femur fracture [Unknown]
  - Osteoporosis [Unknown]
  - Multiple fractures [Unknown]
  - Low turnover osteopathy [Unknown]
  - Clavicle fracture [Unknown]
